FAERS Safety Report 7384715-1 (Version None)
Quarter: 2011Q1

REPORT INFORMATION
  Report Type: 
  Country: None (occurrence: None)
  Receive Date: 20110330
  Receipt Date: 20110317
  Transmission Date: 20110831
  Serious: Yes (Hospitalization)
  Sender: FDA-Public Use
  Company Number: PHHY2011VE22138

PATIENT
  Age: 86 Year
  Sex: Female

DRUGS (2)
  1. CONCOR [Concomitant]
     Dosage: 2.5 MG, UNK
  2. DIOVAN [Suspect]
     Indication: HYPERTENSION
     Dosage: 160 MG, UNK

REACTIONS (2)
  - FEMUR FRACTURE [None]
  - FALL [None]
